FAERS Safety Report 25166451 (Version 1)
Quarter: 2025Q2

REPORT INFORMATION
  Report Type: Spontaneous
  Country: GR (occurrence: GR)
  Receive Date: 20250407
  Receipt Date: 20250407
  Transmission Date: 20250717
  Serious: Yes (Other)
  Sender: UNICHEM
  Company Number: GR-UNICHEM LABORATORIES LIMITED-UNI-2025-GR-001693

PATIENT

DRUGS (4)
  1. AMOXICILLIN [Suspect]
     Active Substance: AMOXICILLIN
     Indication: Product used for unknown indication
     Route: 065
  2. METRONIDAZOLE [Suspect]
     Active Substance: METRONIDAZOLE
     Indication: Preterm premature rupture of membranes
     Route: 065
  3. BETAMETHASONE [Suspect]
     Active Substance: BETAMETHASONE
     Indication: Preterm premature rupture of membranes
     Route: 065
  4. CEFUROXIME [Suspect]
     Active Substance: CEFUROXIME
     Indication: Product used for unknown indication
     Route: 065

REACTIONS (2)
  - Caesarean section [Unknown]
  - Exposure during pregnancy [Unknown]
